FAERS Safety Report 14966921 (Version 1)
Quarter: 2018Q2

REPORT INFORMATION
  Report Type: Spontaneous
  Country: PL (occurrence: PL)
  Receive Date: 20180604
  Receipt Date: 20180604
  Transmission Date: 20180711
  Serious: Yes (Death, Hospitalization)
  Sender: FDA-Public Use
  Company Number: PL-ROCHE-2132389

PATIENT
  Age: 13 Month
  Sex: Female

DRUGS (4)
  1. RITUXIMAB. [Suspect]
     Active Substance: RITUXIMAB
     Indication: CHOLESTASIS
     Dosage: 4 DOSES
     Route: 042
  2. RITUXIMAB. [Suspect]
     Active Substance: RITUXIMAB
     Indication: HEPATITIS NEONATAL
  3. RITUXIMAB. [Suspect]
     Active Substance: RITUXIMAB
     Indication: ANAEMIA
  4. RITUXIMAB. [Suspect]
     Active Substance: RITUXIMAB
     Indication: AUTOIMMUNE HAEMOLYTIC ANAEMIA

REACTIONS (6)
  - Intentional product use issue [Fatal]
  - Off label use [Fatal]
  - Pneumonia [Unknown]
  - Interstitial lung disease [Unknown]
  - Pneumothorax [Unknown]
  - Respiratory failure [Fatal]
